FAERS Safety Report 5792189-7 (Version None)
Quarter: 2008Q2

REPORT INFORMATION
  Report Type: 
  Country: None (occurrence: None)
  Receive Date: 20080626
  Receipt Date: 20080604
  Transmission Date: 20081010
  Serious: No
  Sender: FDA-Public Use
  Company Number: US-BOEHRINGER INGELHEIM GMBH, GERMANY-2008-BP-08853BP

PATIENT
  Age: 71 Year
  Sex: Female

DRUGS (8)
  1. SPIRIVA [Suspect]
     Indication: CHRONIC OBSTRUCTIVE PULMONARY DISEASE
     Route: 055
     Dates: start: 20080601, end: 20080601
  2. VASOTEC [Concomitant]
  3. ZOCOR [Concomitant]
  4. CELEXA [Concomitant]
  5. TENORMIN [Concomitant]
  6. METFORMIN HCL [Concomitant]
  7. HYDROCHLOROTHIAZIDE [Concomitant]
  8. VESICARE [Concomitant]

REACTIONS (1)
  - CHEST DISCOMFORT [None]
